FAERS Safety Report 8932567 (Version 1)
Quarter: 2012Q4

REPORT INFORMATION
  Report Type: Spontaneous
  Country: US (occurrence: None)
  Receive Date: 20121119
  Receipt Date: 20121119
  Transmission Date: 20130627
  Serious: Yes (Hospitalization, Other)
  Sender: FDA-Public Use
  Company Number: 1487108

PATIENT
  Age: 4 Year
  Sex: Female

DRUGS (11)
  1. METHOTREXATE [Suspect]
     Indication: ACUTE  LYMPHOBLASTIC LEUKEMIA
     Route: 037
     Dates: start: 20120814, end: 20120814
  2. DASATINIB [Suspect]
     Indication: ACUTE  LYMPHOBLASTIC LEUKEMIA
     Route: 048
     Dates: start: 20120430
  3. IFOSFAMIDE [Suspect]
     Route: 042
     Dates: start: 20120815, end: 20120817
  4. ETOPOSIDE [Suspect]
     Indication: ACUTE  LYMPHOBLASTIC LEUKEMIA
     Route: 042
     Dates: start: 20120907
  5. DAUNORUBICIN [Suspect]
     Indication: ACUTE  LYMPHOBLASTIC LEUKEMIA
     Route: 042
     Dates: start: 20120818, end: 20120818
  6. DEXAMETHASONE [Suspect]
     Indication: ACUTE  LYMPHOBLASTIC LEUKEMIA
     Route: 048
     Dates: start: 20120416, end: 20120910
  7. CYTARABINE [Suspect]
     Indication: ACUTE  LYMPHOBLASTIC LEUKEMIA
     Route: 039
     Dates: start: 20120814
  8. L-ASPARAGINASE [Suspect]
     Indication: ACUTE  LYMPHOBLASTIC LEUKEMIA
     Dates: start: 20120719, end: 20120819
  9. VINCRISTINE [Suspect]
     Route: 042
     Dates: start: 20120815
  10. PEGASPARGASE [Suspect]
     Dates: start: 20120820, end: 20120820
  11. ZANTAC [Concomitant]

REACTIONS (3)
  - Febrile neutropenia [None]
  - Hypersensitivity [None]
  - Mucosal inflammation [None]
